FAERS Safety Report 9223821 (Version 1)
Quarter: 2013Q2

REPORT INFORMATION
  Report Type: Spontaneous
  Country: US (occurrence: US)
  Receive Date: 20130410
  Receipt Date: 20130410
  Transmission Date: 20140414
  Serious: No
  Sender: FDA-Public Use
  Company Number: US-B.I. PHARMACEUTICALS,INC./RIDGEFIELD-2013-BI-08455BP

PATIENT
  Age: 67 Year
  Sex: Male
  Weight: 89 kg

DRUGS (11)
  1. SPIRIVA [Suspect]
     Indication: PULMONARY OEDEMA
     Dosage: 18 MCG
     Route: 055
     Dates: start: 20130304
  2. PLAVIX [Concomitant]
     Indication: CORONARY ARTERY DISEASE
     Dosage: 75 MG
     Route: 048
  3. ISOSORBIDE [Concomitant]
     Indication: HYPERTENSION
     Dosage: 60 MG
     Route: 048
  4. VENTOLIN HFA [Concomitant]
     Route: 055
  5. KLOR CON [Concomitant]
     Dosage: 20 MEQ
     Route: 048
  6. METOPROLOL [Concomitant]
     Indication: HYPERTENSION
     Dosage: 100 MG
     Route: 048
  7. ADVAIR [Concomitant]
     Indication: PULMONARY OEDEMA
     Route: 055
  8. NORVASC [Concomitant]
     Indication: HYPERTENSION
     Dosage: 2.5 MG
     Route: 048
  9. FUROSEMIDE [Concomitant]
     Dosage: 40 MG
     Route: 048
  10. VITAMIN D [Concomitant]
     Dosage: 2000 U
     Route: 048
  11. FLEXERIL [Concomitant]
     Indication: BACK PAIN
     Route: 048

REACTIONS (3)
  - Dyspnoea exertional [Not Recovered/Not Resolved]
  - Product quality issue [Not Recovered/Not Resolved]
  - Product quality issue [Not Recovered/Not Resolved]
